FAERS Safety Report 19354465 (Version 1)
Quarter: 2021Q2

REPORT INFORMATION
  Report Type: Spontaneous
  Country: US (occurrence: US)
  Receive Date: 20210601
  Receipt Date: 20210601
  Transmission Date: 20210717
  Serious: Yes (Hospitalization)
  Sender: FDA-Public Use
  Company Number: None

PATIENT
  Age: 66 Year
  Sex: Male
  Weight: 78 kg

DRUGS (2)
  1. HEPARIN (HEPARIN NA 5000 UNT/ML SYRINGE,1ML) [Suspect]
     Active Substance: HEPARIN SODIUM
     Indication: CARDIOVASCULAR DISORDER
     Route: 058
     Dates: start: 20210413, end: 20210426
  2. HEPARIN (HEPARIN NA 5000 UNT/ML SYRINGE,1ML) [Suspect]
     Active Substance: HEPARIN SODIUM
     Indication: VASCULAR OPERATION
     Route: 058
     Dates: start: 20210413, end: 20210426

REACTIONS (4)
  - Thrombocytopenia [None]
  - Antiphospholipid syndrome [None]
  - Thrombosis in device [None]
  - Jugular vein thrombosis [None]

NARRATIVE: CASE EVENT DATE: 20210505
